FAERS Safety Report 5132187-X (Version None)
Quarter: 2006Q4

REPORT INFORMATION
  Report Type: 
  Country: None (occurrence: None)
  Receive Date: 20061017
  Receipt Date: 20061011
  Transmission Date: 20070319
  Serious: Yes (Other)
  Sender: FDA-Public Use
  Company Number: S06-USA-03504-01

PATIENT
  Age: 20 Year
  Sex: Female

DRUGS (6)
  1. LEXAPRO [Suspect]
     Indication: ANXIETY
     Dates: start: 20030101, end: 20061005
  2. LEXAPRO [Suspect]
     Indication: DEPRESSION
     Dates: start: 20030101, end: 20061005
  3. KLONOPIN [Concomitant]
  4. NEURONTIN [Concomitant]
  5. VALIUM [Concomitant]
  6. PERCOCET [Concomitant]

REACTIONS (17)
  - BACK PAIN [None]
  - BIPOLAR DISORDER [None]
  - DIZZINESS [None]
  - DRUG DEPENDENCE [None]
  - EUPHORIC MOOD [None]
  - FEELING ABNORMAL [None]
  - HOT FLUSH [None]
  - INFLUENZA LIKE ILLNESS [None]
  - INTENTIONAL DRUG MISUSE [None]
  - IRRITABILITY [None]
  - NIGHT SWEATS [None]
  - PAIN IN EXTREMITY [None]
  - SELF MUTILATION [None]
  - SELF-MEDICATION [None]
  - SEXUAL ASSAULT VICTIM [None]
  - SKIN LACERATION [None]
  - SUICIDAL IDEATION [None]
